FAERS Safety Report 25402644 (Version 1)
Quarter: 2025Q2

REPORT INFORMATION
  Report Type: Spontaneous
  Country: CN (occurrence: CN)
  Receive Date: 20250605
  Receipt Date: 20250605
  Transmission Date: 20250717
  Serious: Yes (Hospitalization)
  Sender: BRACCO
  Company Number: CN-BRACCO-2025CN03509

PATIENT
  Age: 58 Year
  Sex: Male

DRUGS (1)
  1. IOMERON [Suspect]
     Active Substance: IOMEPROL
     Indication: Angiogram cerebral
     Route: 013
     Dates: start: 20250521, end: 20250521

REACTIONS (2)
  - Cognitive disorder [Recovering/Resolving]
  - Muscular weakness [Recovering/Resolving]

NARRATIVE: CASE EVENT DATE: 20250522
